FAERS Safety Report 10191876 (Version 1)
Quarter: 2014Q2

REPORT INFORMATION
  Report Type: Spontaneous
  Country: US (occurrence: US)
  Receive Date: 20140523
  Receipt Date: 20140523
  Transmission Date: 20141212
  Serious: No
  Sender: FDA-Public Use
  Company Number: US-AMGEN INC.-USASP2014034078

PATIENT
  Age: 74 Year
  Sex: Female

DRUGS (6)
  1. PROLIA [Suspect]
     Indication: OSTEOPOROSIS POSTMENOPAUSAL
     Dosage: UNK
     Route: 065
     Dates: start: 201305
  2. ARMOUR THYROID [Concomitant]
  3. VITAMIN D                          /00107901/ [Concomitant]
     Dosage: 2000 IU, QHS
  4. ASHWAGANDHA                        /01660201/ [Concomitant]
     Dosage: UNK UNK, QHS
  5. RHODIOLA                           /02220301/ [Concomitant]
     Dosage: UNK UNK, QHS
  6. UBIQUINOL CO Q10 [Concomitant]
     Dosage: UNK UNK, QHS

REACTIONS (11)
  - Urinary incontinence [Unknown]
  - Dyspnoea [Recovering/Resolving]
  - Skin odour abnormal [Recovered/Resolved]
  - Rash pruritic [Recovered/Resolved]
  - Secretion discharge [Recovered/Resolved]
  - Rash erythematous [Recovered/Resolved]
  - Insomnia [Recovered/Resolved]
  - Intervertebral disc disorder [Unknown]
  - Discomfort [Recovered/Resolved]
  - Body height decreased [Unknown]
  - Rash [Recovered/Resolved]
